FAERS Safety Report 23424855 (Version 2)
Quarter: 2024Q2

REPORT INFORMATION
  Report Type: Spontaneous
  Country: US (occurrence: US)
  Receive Date: 20240121
  Receipt Date: 20240409
  Transmission Date: 20240716
  Serious: No
  Sender: FDA-Public Use
  Company Number: US-SA-SAC20240116000489

PATIENT
  Age: 63 Year
  Sex: Female

DRUGS (2)
  1. DUPIXENT [Suspect]
     Active Substance: DUPILUMAB
     Indication: Dermatitis atopic
     Dosage: 300 MG, QOW
     Route: 058
     Dates: end: 202312
  2. DUPIXENT [Suspect]
     Active Substance: DUPILUMAB
     Dosage: 300 MG, QOW
     Route: 058

REACTIONS (8)
  - Dental prosthesis user [Unknown]
  - Sleep disorder [Unknown]
  - Dizziness [Unknown]
  - Nasopharyngitis [Unknown]
  - Pruritus [Unknown]
  - Injection site pain [Unknown]
  - Product preparation error [Unknown]
  - Therapeutic response decreased [Unknown]
